FAERS Safety Report 10232339 (Version 2)
Quarter: 2014Q3

REPORT INFORMATION
  Report Type: Report from Study
  Country: BR (occurrence: BR)
  Receive Date: 20140612
  Receipt Date: 20140819
  Transmission Date: 20150326
  Serious: Yes (Hospitalization, Other)
  Sender: FDA-Public Use
  Company Number: PHHY2014BR071926

PATIENT
  Sex: Male
  Weight: 50 kg

DRUGS (1)
  1. FORASEQ [Suspect]
     Active Substance: BUDESONIDE\FORMOTEROL FUMARATE
     Indication: EMPHYSEMA
     Dosage: UNK UKN, SOMETIMES 3 TO 4 TIMES DAILY
     Route: 055

REACTIONS (5)
  - Fall [Unknown]
  - Wrist fracture [Not Recovered/Not Resolved]
  - Lung disorder [Unknown]
  - Emphysema [Unknown]
  - Forearm fracture [Not Recovered/Not Resolved]
